FAERS Safety Report 6955400-2 (Version None)
Quarter: 2010Q3

REPORT INFORMATION
  Report Type: 
  Country: None (occurrence: None)
  Receive Date: 20100830
  Receipt Date: 20100616
  Transmission Date: 20110219
  Serious: No
  Sender: FDA-Public Use
  Company Number: US-BRISTOL-MYERS SQUIBB COMPANY-15152267

PATIENT
  Age: 53 Year
  Sex: Male

DRUGS (2)
  1. SINEMET [Suspect]
     Indication: MUSCLE SPASMS
  2. PHENOBARBITAL [Concomitant]
     Indication: POLLAKIURIA

REACTIONS (1)
  - OBSESSIVE-COMPULSIVE DISORDER [None]
